FAERS Safety Report 8198730-1 (Version None)
Quarter: 2012Q1

REPORT INFORMATION
  Report Type: 
  Country: None (occurrence: None)
  Receive Date: 20120309
  Receipt Date: 20120202
  Transmission Date: 20120608
  Serious: No
  Sender: FDA-Public Use
  Company Number: US-AMGEN-USASP2012007097

PATIENT
  Age: 78 Year
  Sex: Female

DRUGS (6)
  1. PROLIA [Suspect]
     Indication: OSTEOPOROSIS POSTMENOPAUSAL
     Dosage: 60 MG, Q6MO
     Route: 058
     Dates: start: 20110901
  2. GELATIN [Concomitant]
  3. IBUPROFEN (ADVIL) [Concomitant]
  4. ASPIRIN [Concomitant]
     Dosage: UNK MG, UNK
  5. VITAMIN D [Concomitant]
  6. MULTIVITAMIN                       /00097801/ [Concomitant]

REACTIONS (4)
  - MYALGIA [None]
  - MUSCULOSKELETAL PAIN [None]
  - PAIN [None]
  - BACK PAIN [None]
